FAERS Safety Report 23386660 (Version 1)
Quarter: 2024Q1

REPORT INFORMATION
  Report Type: Spontaneous
  Country: US (occurrence: None)
  Receive Date: 20240110
  Receipt Date: 20240110
  Transmission Date: 20240409
  Serious: No
  Sender: FDA-Public Use
  Company Number: US-ROCHE-3487302

PATIENT
  Sex: Female

DRUGS (1)
  1. OCREVUS [Suspect]
     Active Substance: OCRELIZUMAB
     Indication: Multiple sclerosis
     Route: 065

REACTIONS (6)
  - Influenza [Not Recovered/Not Resolved]
  - Illness [Unknown]
  - Nasal congestion [Unknown]
  - Hyperhidrosis [Unknown]
  - Memory impairment [Unknown]
  - Pain [Unknown]
